FAERS Safety Report 11860292 (Version 3)
Quarter: 2016Q2

REPORT INFORMATION
  Report Type: Spontaneous
  Country: JP (occurrence: JP)
  Receive Date: 20151222
  Receipt Date: 20160429
  Transmission Date: 20160815
  Serious: Yes (Hospitalization, Other)
  Sender: FDA-Public Use
  Company Number: JP-PFIZER INC-2015457859

PATIENT
  Age: 50 Year
  Sex: Female
  Weight: 42 kg

DRUGS (7)
  1. TRAMCET [Suspect]
     Active Substance: ACETAMINOPHEN\TRAMADOL
     Indication: SCIATICA
     Dosage: UNK
     Route: 048
     Dates: start: 20151207
  2. JUNCHOTO [Suspect]
     Active Substance: HERBALS
     Indication: CONSTIPATION
     Dosage: 2.5 G, 2X/DAY
     Route: 048
     Dates: start: 20150821, end: 20151122
  3. TRAMCET [Suspect]
     Active Substance: ACETAMINOPHEN\TRAMADOL
     Indication: PERIARTHRITIS
     Dosage: 1 DF, 2X/DAY
     Route: 048
     Dates: start: 20150707, end: 20151122
  4. DOMPERIDONE [Suspect]
     Active Substance: DOMPERIDONE
     Indication: NAUSEA
     Dosage: 10 MG, 2X/DAY
     Route: 048
     Dates: start: 20150707, end: 20151122
  5. CELECOX [Suspect]
     Active Substance: CELECOXIB
     Indication: PERIARTHRITIS
     Dosage: 100 MG, 2X/DAY
     Route: 048
     Dates: start: 20150623, end: 20151122
  6. CELECOX [Suspect]
     Active Substance: CELECOXIB
     Indication: SCIATICA
  7. NIJUTSUTO [Suspect]
     Active Substance: HERBALS
     Indication: PERIARTHRITIS
     Dosage: 2.5 G, 3X/DAY
     Route: 048
     Dates: start: 20150904, end: 20151122

REACTIONS (2)
  - Product use issue [Unknown]
  - Pneumonia [Recovered/Resolved]

NARRATIVE: CASE EVENT DATE: 201511
